FAERS Safety Report 4656925-5 (Version None)
Quarter: 2005Q2

REPORT INFORMATION
  Report Type: 
  Country: None (occurrence: None)
  Receive Date: 20050506
  Receipt Date: 20050425
  Transmission Date: 20051028
  Serious: No
  Sender: FDA-Public Use
  Company Number: 05P-163-0298416-00

PATIENT
  Age: 35 Year
  Sex: Female

DRUGS (2)
  1. KALETRA [Suspect]
     Indication: RETROVIRAL INFECTION
     Dosage: PER ORAL
     Route: 048
     Dates: start: 20050215
  2. TRIZIVIR [Suspect]
     Indication: RETROVIRAL INFECTION
     Dosage: PER ORAL
     Route: 048
     Dates: start: 20050215

REACTIONS (3)
  - ABORTION SPONTANEOUS [None]
  - DRUG EXPOSURE DURING PREGNANCY [None]
  - T-LYMPHOCYTE COUNT ABNORMAL [None]
